FAERS Safety Report 7733771-7 (Version None)
Quarter: 2011Q3

REPORT INFORMATION
  Report Type: 
  Country: None (occurrence: None)
  Receive Date: 20110902
  Receipt Date: 20110902
  Transmission Date: 20111222
  Serious: Yes (Life-Threatening)
  Sender: FDA-Public Use
  Company Number: None

PATIENT
  Sex: Male
  Weight: 77.1115 kg

DRUGS (1)
  1. PLAVIX [Suspect]
     Indication: BLOOD CHOLESTEROL
     Dosage: 1 ONCE A DAY
     Dates: start: 20110728, end: 20110801

REACTIONS (3)
  - PRURITUS [None]
  - SKIN ULCER [None]
  - URTICARIA [None]
